FAERS Safety Report 4561632-3 (Version None)
Quarter: 2005Q1

REPORT INFORMATION
  Report Type: 
  Country: None (occurrence: None)
  Receive Date: 20050126
  Receipt Date: 20050113
  Transmission Date: 20050727
  Serious: Yes (Life-Threatening, Other)
  Sender: FDA-Public Use
  Company Number: FR-GLAXOSMITHKLINE-B0364763A

PATIENT
  Age: 42 Year
  Sex: Male

DRUGS (9)
  1. COMBIVIR [Suspect]
     Indication: HIV INFECTION
     Dosage: 1TAB TWICE PER DAY
     Route: 048
     Dates: start: 20030601, end: 20040409
  2. VIRACEPT [Suspect]
     Indication: HIV INFECTION
     Route: 048
     Dates: end: 20040409
  3. BACTRIM DS [Suspect]
     Route: 048
     Dates: start: 20031201, end: 20040409
  4. DEPAKENE [Suspect]
     Indication: EPILEPSY
     Dosage: 500MG TWICE PER DAY
     Route: 048
     Dates: start: 20030901, end: 20040415
  5. COVERSYL [Suspect]
     Indication: HYPERTENSION
     Dosage: 4MG PER DAY
     Route: 048
     Dates: start: 20030601
  6. LIORESAL [Suspect]
     Dosage: 50MG PER DAY
     Route: 048
     Dates: end: 20040409
  7. ASPEGIC 325 [Concomitant]
     Route: 048
     Dates: start: 20030601
  8. LYSANXIA [Concomitant]
     Route: 048
     Dates: end: 20040409
  9. FUMAFER [Concomitant]
     Route: 048
     Dates: end: 20040409

REACTIONS (8)
  - ALANINE AMINOTRANSFERASE INCREASED [None]
  - ANAEMIA [None]
  - ASPARTATE AMINOTRANSFERASE INCREASED [None]
  - BLOOD LACTATE DEHYDROGENASE INCREASED [None]
  - BONE MARROW DEPRESSION [None]
  - LEUKOPENIA [None]
  - PROTHROMBIN LEVEL DECREASED [None]
  - THROMBOCYTOPENIA [None]
